FAERS Safety Report 7638828-7 (Version None)
Quarter: 2011Q3

REPORT INFORMATION
  Report Type: 
  Country: None (occurrence: None)
  Receive Date: 20110726
  Receipt Date: 20110726
  Transmission Date: 20111222
  Serious: No
  Sender: FDA-Public Use
  Company Number: None

PATIENT
  Sex: Male
  Weight: 67 kg

DRUGS (2)
  1. CARBOPLATIN [Suspect]
     Dosage: 615 MG
     Dates: end: 20110608
  2. TAXOL [Suspect]
     Dosage: 275 MG
     Dates: end: 20110608

REACTIONS (2)
  - FATIGUE [None]
  - PLATELET COUNT DECREASED [None]
